FAERS Safety Report 24147841 (Version 1)
Quarter: 2024Q3

REPORT INFORMATION
  Report Type: Spontaneous
  Country: US (occurrence: None)
  Receive Date: 20240727
  Receipt Date: 20240727
  Transmission Date: 20241017
  Serious: No
  Sender: Public
  Company Number: None

PATIENT
  Age: 21 Year
  Sex: Male
  Weight: 66.6 kg

DRUGS (4)
  1. HUMIRA [Suspect]
     Active Substance: ADALIMUMAB
     Indication: Crohn^s disease
     Dosage: 2 INJECTIONS  1 INJECTION EVERY  OTHER   SUBCUTANEOUS ?
     Route: 058
  2. Lamictal ext release [Concomitant]
  3. Busperone [Concomitant]
  4. HYDROXYZINE [Concomitant]
     Active Substance: HYDROXYZINE HYDROCHLORIDE

REACTIONS (5)
  - Hypoaesthesia [None]
  - Pyrexia [None]
  - Pain [None]
  - Discomfort [None]
  - Injection site induration [None]

NARRATIVE: CASE EVENT DATE: 20240726
